FAERS Safety Report 20484372 (Version 4)
Quarter: 2022Q2

REPORT INFORMATION
  Report Type: Spontaneous
  Country: CA (occurrence: CA)
  Receive Date: 20220217
  Receipt Date: 20220622
  Transmission Date: 20220720
  Serious: Yes (Other)
  Sender: FDA-Public Use
  Company Number: CA-PFIZER INC-202101780557

PATIENT
  Age: 77 Year
  Sex: Male
  Weight: 87.1 kg

DRUGS (19)
  1. XELJANZ [Suspect]
     Active Substance: TOFACITINIB CITRATE
     Indication: Colitis ulcerative
     Dosage: 10 MG, 2X/DAY (INDUCTION: 10 MG, 2X/DAY; MAINTENANCE: 5 MG, 2X/DAY, NOT STARTED YET)
     Route: 048
  2. XELJANZ [Suspect]
     Active Substance: TOFACITINIB CITRATE
     Dosage: 5 MG, 2X/DAY (INDUCTION: 10 MG, 2X/DAY; MAINTENANCE: 5 MG, 2X/DAY)
     Route: 048
     Dates: start: 20211210
  3. XELJANZ [Suspect]
     Active Substance: TOFACITINIB CITRATE
     Dosage: 10 MG, 2X/DAY (INDUCTION: 10 MG, 2X/DAY; MAINTENANCE: 5 MG, 2X/DAY)
     Route: 048
     Dates: start: 20211210
  4. XELJANZ [Suspect]
     Active Substance: TOFACITINIB CITRATE
     Dosage: 10 MG, 2X/DAY (INDUCTION: 10 MG, 2X/DAY; MAINTENANCE: 5 MG, 2X/DAY)
     Route: 048
     Dates: start: 20211211
  5. XELJANZ [Suspect]
     Active Substance: TOFACITINIB CITRATE
     Dosage: 10 MG, 2X/DAY (INDUCTION: 10 MG, 2X/DAY; MAINTENANCE: 5 MG, 2X/DAY)
     Route: 048
     Dates: start: 20210204
  6. XELJANZ [Suspect]
     Active Substance: TOFACITINIB CITRATE
     Dosage: 5 MG, 2X/DAY
     Route: 048
  7. ASPIRIN [Concomitant]
     Active Substance: ASPIRIN
     Dosage: 81 MG, DAILY
  8. BUDESONIDE [Concomitant]
     Active Substance: BUDESONIDE
     Dosage: UNK
  9. FELODIPINE [Concomitant]
     Active Substance: FELODIPINE
     Dosage: 5 MG, 1X/DAY
  10. IRON [Concomitant]
     Active Substance: IRON
     Dosage: UNK UNK, DAILY
  11. LORAZEPAM [Concomitant]
     Active Substance: LORAZEPAM
     Dosage: 1 MG, AS NEEDED
  12. MOXIFLOXACIN [Concomitant]
     Active Substance: MOXIFLOXACIN
     Dosage: 400 MG
  13. PULMICORT TURBUHALER [Concomitant]
     Active Substance: BUDESONIDE
     Dosage: UNK
  14. PRAVASTATIN [Concomitant]
     Active Substance: PRAVASTATIN
     Dosage: 20 MG, 1X/DAY
  15. PREDNISONE [Concomitant]
     Active Substance: PREDNISONE
     Dosage: 10 MG, 1X/DAY (TAPERING DOSE)
  16. PREDNISONE [Concomitant]
     Active Substance: PREDNISONE
     Dosage: 5 MG
  17. PANTOPRAZOLE [Concomitant]
     Active Substance: PANTOPRAZOLE
     Dosage: 40 MG, 1X/DAY
  18. MESALAMINE [Concomitant]
     Active Substance: MESALAMINE
     Dosage: 1000 MG
  19. TRELEGY ELLIPTA [Concomitant]
     Active Substance: FLUTICASONE FUROATE\UMECLIDINIUM BROMIDE\VILANTEROL TRIFENATATE
     Dosage: 1 PUFF, 1X/DAY

REACTIONS (6)
  - Haematochezia [Not Recovered/Not Resolved]
  - Colectomy [Unknown]
  - Drug ineffective [Unknown]
  - Treatment failure [Unknown]
  - Off label use [Unknown]
  - Dizziness postural [Unknown]

NARRATIVE: CASE EVENT DATE: 20211210
